FAERS Safety Report 9349008 (Version 2)
Quarter: 2013Q3

REPORT INFORMATION
  Report Type: Report from Study
  Country: US (occurrence: US)
  Receive Date: 20130614
  Receipt Date: 20130815
  Transmission Date: 20140515
  Serious: Yes (Hospitalization)
  Sender: FDA-Public Use
  Company Number: US-ABBOTT-13P-163-1101777-00

PATIENT
  Sex: Female
  Weight: 88.53 kg

DRUGS (8)
  1. HUMIRA [Suspect]
     Indication: CROHN^S DISEASE
     Route: 058
     Dates: start: 2011, end: 2011
  2. HUMIRA [Suspect]
     Route: 058
     Dates: start: 2011, end: 2011
  3. HUMIRA [Suspect]
     Route: 058
     Dates: start: 2011
  4. AZATHIOPRINE [Concomitant]
     Indication: CROHN^S DISEASE
  5. LORTAB [Concomitant]
     Indication: CROHN^S DISEASE
  6. UNKNOWN MEDICATION [Concomitant]
     Indication: STRESS
  7. VITAMIN C [Concomitant]
     Indication: MEDICAL DIET
  8. VITAMIN B12 [Concomitant]
     Indication: MEDICAL DIET

REACTIONS (3)
  - Intestinal obstruction [Recovered/Resolved]
  - Crohn^s disease [Recovered/Resolved]
  - Rectal haemorrhage [Recovered/Resolved]
